FAERS Safety Report 5877119-1 (Version None)
Quarter: 2008Q3

REPORT INFORMATION
  Report Type: 
  Country: None (occurrence: None)
  Receive Date: 20080908
  Receipt Date: 20080908
  Transmission Date: 20090109
  Serious: Yes (Other)
  Sender: FDA-Public Use
  Company Number: None

PATIENT
  Age: 71 Year
  Sex: Female
  Weight: 68.0396 kg

DRUGS (1)
  1. PANTOPRAZOLE SODIUM [Suspect]
     Indication: GASTROOESOPHAGEAL REFLUX DISEASE
     Dosage: 1 TABLET PER DAY
     Dates: start: 20080815, end: 20080827

REACTIONS (8)
  - DIZZINESS [None]
  - DRUG HYPERSENSITIVITY [None]
  - EYE DISORDER [None]
  - FATIGUE [None]
  - HEADACHE [None]
  - HYPERAESTHESIA [None]
  - RASH [None]
  - VISION BLURRED [None]
